FAERS Safety Report 15309763 (Version 3)
Quarter: 2020Q4

REPORT INFORMATION
  Report Type: Spontaneous
  Country: IT (occurrence: IT)
  Receive Date: 20180823
  Receipt Date: 20201027
  Transmission Date: 20210113
  Serious: Yes (Other)
  Sender: FDA-Public Use
  Company Number: IT-SUN PHARMACEUTICAL INDUSTRIES LTD-2018RR-182325

PATIENT
  Age: 32 Year
  Sex: Male

DRUGS (6)
  1. LEVOCETIRIZINE [Suspect]
     Active Substance: LEVOCETIRIZINE
     Indication: HYPERSENSITIVITY
     Dosage: 5 MG, DAILY
     Route: 048
     Dates: start: 20170901, end: 20171120
  2. FRISTAMIN [Concomitant]
     Active Substance: LORATADINE
     Indication: PRODUCT USED FOR UNKNOWN INDICATION
     Dosage: 1 DF, UNK
     Route: 065
     Dates: start: 20171101, end: 20171201
  3. FRISTAMIN [Concomitant]
     Active Substance: LORATADINE
     Dosage: STOP DATE DEC17
     Route: 065
     Dates: start: 20170110
  4. FRISTAMIN [Concomitant]
     Active Substance: LORATADINE
     Dosage: STOP DATE 2017 ()
     Route: 065
     Dates: start: 20170901
  5. BENTELAN [Concomitant]
     Active Substance: BETAMETHASONE SODIUM PHOSPHATE
     Indication: PRODUCT USED FOR UNKNOWN INDICATION
     Dosage: ()
     Route: 065
     Dates: start: 20171120
  6. FRISTAMIN [Concomitant]
     Active Substance: LORATADINE
     Dosage: 0.25 DF, UNK
     Route: 065
     Dates: start: 20171215

REACTIONS (4)
  - Weight increased [Unknown]
  - Urticaria [Not Recovered/Not Resolved]
  - Skin warm [Not Recovered/Not Resolved]
  - Pruritus [Not Recovered/Not Resolved]

NARRATIVE: CASE EVENT DATE: 20171122
